FAERS Safety Report 6266873-5 (Version None)
Quarter: 2009Q3

REPORT INFORMATION
  Report Type: 
  Country: None (occurrence: None)
  Receive Date: 20090714
  Receipt Date: 20090709
  Transmission Date: 20100115
  Serious: Yes (Life-Threatening, Hospitalization, Disabling, Other)
  Sender: FDA-Public Use
  Company Number: US-ASTRAZENECA-2009UW19374

PATIENT
  Age: 55 Year
  Sex: Female

DRUGS (3)
  1. SEROQUEL [Suspect]
     Indication: BIPOLAR DISORDER
     Route: 048
     Dates: start: 20090517, end: 20090521
  2. SEROQUEL [Suspect]
     Route: 048
     Dates: start: 20090522, end: 20090524
  3. LITHIUM [Concomitant]
     Indication: BIPOLAR DISORDER

REACTIONS (3)
  - DIABETIC ENCEPHALOPATHY [None]
  - DIABETIC HYPEROSMOLAR COMA [None]
  - ISCHAEMIC STROKE [None]
